FAERS Safety Report 5648640-6 (Version None)
Quarter: 2008Q1

REPORT INFORMATION
  Report Type: 
  Country: None (occurrence: None)
  Receive Date: 20080304
  Receipt Date: 20080212
  Transmission Date: 20080703
  Serious: Yes (Death)
  Sender: FDA-Public Use
  Company Number: A0699228A

PATIENT
  Age: 10 Year
  Sex: Male

DRUGS (4)
  1. ADVAIR DISKUS 100/50 [Suspect]
     Indication: ASTHMA
     Route: 055
     Dates: end: 20060714
  2. ALBUTEROL [Concomitant]
  3. SINGULAIR [Concomitant]
  4. FLONASE [Concomitant]

REACTIONS (8)
  - ANOXIC ENCEPHALOPATHY [None]
  - ASTHMA [None]
  - COUGH [None]
  - DYSPNOEA [None]
  - LUNG HYPERINFLATION [None]
  - PYREXIA [None]
  - RESPIRATORY ARREST [None]
  - UPPER RESPIRATORY TRACT INFECTION [None]
